FAERS Safety Report 6959293-9 (Version None)
Quarter: 2010Q3

REPORT INFORMATION
  Report Type: 
  Country: None (occurrence: None)
  Receive Date: 20100831
  Receipt Date: 20100817
  Transmission Date: 20110219
  Serious: No
  Sender: FDA-Public Use
  Company Number: US-PFIZER INC-2010087382

PATIENT
  Age: 86 Year
  Sex: Female

DRUGS (2)
  1. LYRICA [Suspect]
     Indication: HERPES ZOSTER
     Dosage: 100 MG, 2X/DAY
  2. LYRICA [Suspect]
     Dosage: 100 MG, 3X/DAY

REACTIONS (3)
  - DRUG INEFFECTIVE [None]
  - NEURALGIA [None]
  - PAIN [None]
